FAERS Safety Report 24985027 (Version 1)
Quarter: 2025Q1

REPORT INFORMATION
  Report Type: Spontaneous
  Country: CA (occurrence: CA)
  Receive Date: 20250219
  Receipt Date: 20250219
  Transmission Date: 20250409
  Serious: Yes (Disabling, Other)
  Sender: UNICHEM
  Company Number: CA-UNICHEM LABORATORIES LIMITED-UNI-2025-CA-001293

PATIENT

DRUGS (4)
  1. CLONIDINE [Suspect]
     Active Substance: CLONIDINE
     Indication: Atrial septal defect
     Route: 065
  2. CLONIDINE [Suspect]
     Active Substance: CLONIDINE
     Indication: Attention deficit hyperactivity disorder
  3. CLONIDINE [Suspect]
     Active Substance: CLONIDINE
     Indication: Obsessive-compulsive disorder
  4. CLONIDINE [Suspect]
     Active Substance: CLONIDINE
     Indication: Tourette^s disorder

REACTIONS (4)
  - Vocal cord disorder [Not Recovered/Not Resolved]
  - Tic [Not Recovered/Not Resolved]
  - Hypertension [Unknown]
  - Anxiety [Unknown]
